FAERS Safety Report 23353239 (Version 4)
Quarter: 2024Q1

REPORT INFORMATION
  Report Type: Spontaneous
  Country: US (occurrence: US)
  Receive Date: 20231230
  Receipt Date: 20240202
  Transmission Date: 20240410
  Serious: Yes (Hospitalization, Disabling)
  Sender: FDA-Public Use
  Company Number: US-SANOFI-01889983

PATIENT
  Age: 16 Year
  Sex: Female
  Weight: 64 kg

DRUGS (12)
  1. THYMOGLOBULIN [Suspect]
     Active Substance: LAPINE T-LYMPHOCYTE IMMUNE GLOBULIN
     Indication: Transplant rejection
     Dosage: 25 MG, 1X
     Route: 042
     Dates: start: 20231215, end: 20231215
  2. THYMOGLOBULIN [Suspect]
     Active Substance: LAPINE T-LYMPHOCYTE IMMUNE GLOBULIN
     Dosage: 30 MG, 1X
     Route: 042
     Dates: start: 20231216, end: 20231216
  3. THYMOGLOBULIN [Suspect]
     Active Substance: LAPINE T-LYMPHOCYTE IMMUNE GLOBULIN
     Dosage: 30 MG, 1X
     Route: 042
     Dates: start: 20231217, end: 20231217
  4. THYMOGLOBULIN [Suspect]
     Active Substance: LAPINE T-LYMPHOCYTE IMMUNE GLOBULIN
     Dosage: 30 MG, 1X
     Route: 042
     Dates: start: 20231217, end: 20231217
  5. THYMOGLOBULIN [Suspect]
     Active Substance: LAPINE T-LYMPHOCYTE IMMUNE GLOBULIN
     Dosage: 50 MG, QD
     Route: 042
     Dates: start: 20231219, end: 20231220
  6. THYMOGLOBULIN [Suspect]
     Active Substance: LAPINE T-LYMPHOCYTE IMMUNE GLOBULIN
     Dosage: 50 MG, 1X
     Route: 042
     Dates: start: 20231223, end: 20231223
  7. THYMOGLOBULIN [Suspect]
     Active Substance: LAPINE T-LYMPHOCYTE IMMUNE GLOBULIN
     Dosage: 50 MG, QD
     Route: 042
     Dates: start: 20231224, end: 20231225
  8. TACROLIMUS [Concomitant]
     Active Substance: TACROLIMUS
     Indication: Immunosuppression
     Dosage: GOAL INCREASED TO 4-6 FROM 2-5, RANGE 0.3-0.7 MG Q12H
     Route: 048
     Dates: start: 2010
  9. SIROLIMUS [Concomitant]
     Active Substance: SIROLIMUS
     Indication: Immunosuppression
     Dosage: GOAL 4-6 DOSE RANGED 0.2-0.5 MG DAILY
     Route: 048
     Dates: start: 20231220
  10. METHYLPREDNISOLONE [Concomitant]
     Active Substance: METHYLPREDNISOLONE
     Indication: Transplant rejection
     Dosage: 250 MG, Q12H
     Route: 042
     Dates: start: 20231214, end: 20231217
  11. METHYLPREDNISOLONE [Concomitant]
     Active Substance: METHYLPREDNISOLONE
     Indication: Premedication
     Dosage: 50-60 MG Q24H X1 DOSE PRIOR TO EACH DOSE, QD
     Route: 042
     Dates: start: 20231217, end: 20231225
  12. GAMMAGARD [Concomitant]
     Active Substance: HUMAN IMMUNOGLOBULIN G
     Indication: Transplant rejection
     Dosage: 60 G
     Route: 042
     Dates: start: 20231221, end: 20231221

REACTIONS (3)
  - T-lymphocyte count increased [Recovered/Resolved]
  - Drug ineffective for unapproved indication [Unknown]
  - Off label use [Unknown]

NARRATIVE: CASE EVENT DATE: 20231201
